FAERS Safety Report 6343867-2 (Version None)
Quarter: 2009Q3

REPORT INFORMATION
  Report Type: 
  Country: None (occurrence: None)
  Receive Date: 20090908
  Receipt Date: 20090827
  Transmission Date: 20100115
  Serious: Yes (Hospitalization)
  Sender: FDA-Public Use
  Company Number: US-ASTRAZENECA-2009SE10463

PATIENT
  Age: 32 Month
  Sex: Male
  Weight: 16.3 kg

DRUGS (5)
  1. PULMICORT RESPULES [Suspect]
     Route: 055
     Dates: start: 20070101
  2. PULMICORT RESPULES [Suspect]
     Route: 055
     Dates: start: 20080901
  3. PULMICORT RESPULES [Suspect]
     Route: 055
  4. ALBUTEROL [Concomitant]
  5. ATARAX [Concomitant]

REACTIONS (3)
  - RESPIRATORY DISTRESS [None]
  - RESPIRATORY RATE INCREASED [None]
  - WHEEZING [None]
